FAERS Safety Report 6442886-5 (Version None)
Quarter: 2009Q4

REPORT INFORMATION
  Report Type: 
  Country: None (occurrence: None)
  Receive Date: 20091117
  Receipt Date: 20091103
  Transmission Date: 20100525
  Serious: Yes (Hospitalization)
  Sender: FDA-Public Use
  Company Number: FR-BRISTOL-MYERS SQUIBB COMPANY-13427331

PATIENT
  Age: 53 Year
  Sex: Male
  Weight: 66 kg

DRUGS (7)
  1. REYATAZ [Suspect]
     Indication: HIV INFECTION
     Route: 048
     Dates: start: 20040419, end: 20060623
  2. NORVIR [Suspect]
     Dates: start: 20040419
  3. KIVEXA [Concomitant]
     Indication: HIV INFECTION
     Dates: start: 20040419
  4. SPASFON-LYOC [Concomitant]
  5. PEGINTERFERON ALFA-2A [Concomitant]
     Indication: HEPATITIS C
     Route: 058
     Dates: start: 20050801
  6. REBETOL [Concomitant]
     Indication: HEPATITIS C
     Route: 048
     Dates: start: 20050801
  7. TELZIR [Concomitant]
     Dates: start: 20060623

REACTIONS (2)
  - NEPHROLITHIASIS [None]
  - RENAL COLIC [None]
